FAERS Safety Report 24296466 (Version 4)
Quarter: 2024Q4

REPORT INFORMATION
  Report Type: Report from Study
  Country: US (occurrence: US)
  Receive Date: 20240909
  Receipt Date: 20241118
  Transmission Date: 20250115
  Serious: Yes (Other)
  Sender: ACADIA PHARMACEUTICALS
  Company Number: US-ACADIA PHARMACEUTICALS INC.-ACA-2024-TRF-004710

PATIENT
  Sex: Female

DRUGS (3)
  1. DAYBUE [Suspect]
     Active Substance: TROFINETIDE
     Indication: Rett syndrome
     Dosage: 7.5ML/BID
     Route: 048
     Dates: start: 202408
  2. DAYBUE [Suspect]
     Active Substance: TROFINETIDE
     Dosage: 10 MILLILITER, BID
     Route: 048
  3. DAYBUE [Suspect]
     Active Substance: TROFINETIDE
     Dosage: 13 MILLILITER, BID
     Route: 048

REACTIONS (8)
  - Seizure [Recovering/Resolving]
  - Faeces soft [Not Recovered/Not Resolved]
  - Underdose [Not Recovered/Not Resolved]
  - Hiccups [Not Recovered/Not Resolved]
  - Bruxism [Not Recovered/Not Resolved]
  - Influenza [Not Recovered/Not Resolved]
  - Labyrinthitis [Not Recovered/Not Resolved]
  - Diarrhoea [Not Recovered/Not Resolved]
